FAERS Safety Report 11059939 (Version 1)
Quarter: 2015Q2

REPORT INFORMATION
  Report Type: Spontaneous
  Country: US (occurrence: US)
  Receive Date: 20150423
  Receipt Date: 20150423
  Transmission Date: 20150821
  Serious: Yes (Death)
  Sender: FDA-Public Use
  Company Number: US-CIPLA LTD.-2015US03329

PATIENT

DRUGS (5)
  1. ACETAMINOPHEN. [Suspect]
     Active Substance: ACETAMINOPHEN
  2. HYDROCODONE [Suspect]
     Active Substance: HYDROCODONE
  3. AMITRIPTYLINE [Suspect]
     Active Substance: AMITRIPTYLINE
  4. GABAPENTIN. [Suspect]
     Active Substance: GABAPENTIN
  5. CITALOPRAM [Suspect]
     Active Substance: CITALOPRAM HYDROBROMIDE

REACTIONS (1)
  - Death [Fatal]
